FAERS Safety Report 6392318-0 (Version None)
Quarter: 2009Q4

REPORT INFORMATION
  Report Type: 
  Country: None (occurrence: None)
  Receive Date: 20091007
  Receipt Date: 20090924
  Transmission Date: 20100525
  Serious: Yes (Hospitalization, Other)
  Sender: FDA-Public Use
  Company Number: PHHY2009JP15200

PATIENT
  Sex: Female
  Weight: 53 kg

DRUGS (8)
  1. ZOMETA [Suspect]
     Indication: HYPERCALCAEMIA OF MALIGNANCY
     Dosage: 4 MG, QMO
     Route: 042
     Dates: start: 20071010, end: 20090304
  2. AROMASIN [Concomitant]
     Indication: HYPERCALCAEMIA OF MALIGNANCY
     Dosage: UNK
     Route: 048
     Dates: end: 20090422
  3. OXYCONTIN [Concomitant]
     Indication: ANALGESIC THERAPY
     Dosage: UNK
     Route: 048
     Dates: end: 20090422
  4. GASTER [Concomitant]
     Indication: PROPHYLAXIS AGAINST GASTROINTESTINAL ULCER
     Dosage: UNK
  5. HYSRON [Concomitant]
     Indication: HYPERCALCAEMIA OF MALIGNANCY
     Dosage: UNK
     Route: 048
     Dates: end: 20090422
  6. FERROMIA [Concomitant]
     Indication: ANAEMIA
     Dosage: UNK
     Route: 048
     Dates: end: 20090422
  7. CYCLOPHOSPHAMIDE [Concomitant]
     Indication: HYPERCALCAEMIA OF MALIGNANCY
     Dosage: UNK
     Dates: end: 20090422
  8. POTASSIUM CHLORIDE [Concomitant]

REACTIONS (4)
  - HYPOCALCAEMIA [None]
  - HYPOKALAEMIA [None]
  - RENAL IMPAIRMENT [None]
  - RHABDOMYOLYSIS [None]
